FAERS Safety Report 5734006-7 (Version None)
Quarter: 2008Q2

REPORT INFORMATION
  Report Type: 
  Country: None (occurrence: None)
  Receive Date: 20080509
  Receipt Date: 20080428
  Transmission Date: 20081010
  Serious: Yes (Other)
  Sender: FDA-Public Use
  Company Number: JP-ELI_LILLY_AND_COMPANY-JP200803000378

PATIENT
  Sex: Female
  Weight: 45 kg

DRUGS (9)
  1. EVISTA [Suspect]
     Indication: OSTEOPOROSIS
     Dosage: 60 MG, DAILY (1/D)
     Route: 048
     Dates: end: 20080206
  2. VOGLIBOSE [Concomitant]
     Dosage: 0.2 MG, 2/D
     Route: 048
  3. ZENASPIRIN [Concomitant]
     Dosage: 100 MG, DAILY (1/D)
     Route: 048
  4. LIORESAL [Concomitant]
     Dosage: 5 MG, DAILY (1/D)
     Route: 048
  5. NICORANDIL [Concomitant]
     Dosage: 5 MG, 2/D
     Route: 048
  6. RADEN [Concomitant]
     Dosage: 150 MG, 2/D
     Route: 048
  7. SPIRONOLACTONE [Concomitant]
     Dosage: 25 MG, DAILY (1/D)
     Route: 048
  8. CLARUTE [Concomitant]
     Dosage: 100 MG, DAILY (1/D)
     Route: 048
  9. LANIRAPID [Concomitant]
     Dosage: 0.1 MG, DAILY (1/D)
     Route: 048

REACTIONS (1)
  - OSTEONECROSIS [None]
